FAERS Safety Report 24605294 (Version 7)
Quarter: 2025Q3

REPORT INFORMATION
  Report Type: Spontaneous
  Country: US (occurrence: US)
  Receive Date: 20241111
  Receipt Date: 20250704
  Transmission Date: 20251021
  Serious: No
  Sender: SANOFI AVENTIS
  Company Number: US-SA-2024SA314495

PATIENT
  Age: 18 Year
  Sex: Male
  Weight: 61.2 kg

DRUGS (8)
  1. ALPROLIX [Suspect]
     Active Substance: EFTRENONACOG ALFA
     Indication: Factor IX deficiency
     Dosage: 6030 U, QW
     Route: 042
     Dates: start: 202202
  2. ALPROLIX [Suspect]
     Active Substance: EFTRENONACOG ALFA
     Indication: Factor IX deficiency
     Dosage: 6030 U, QW
     Route: 042
     Dates: start: 202202
  3. ALPROLIX [Suspect]
     Active Substance: EFTRENONACOG ALFA
     Route: 042
     Dates: start: 202202
  4. ALPROLIX [Suspect]
     Active Substance: EFTRENONACOG ALFA
     Route: 042
     Dates: start: 202202
  5. ALPROLIX [Suspect]
     Active Substance: EFTRENONACOG ALFA
     Dosage: 5900 UNITS (5310-6490)
     Route: 042
     Dates: start: 202202
  6. ALPROLIX [Suspect]
     Active Substance: EFTRENONACOG ALFA
     Dosage: 5900 UNITS (5310-6490)
     Route: 042
     Dates: start: 202202
  7. ALPROLIX [Suspect]
     Active Substance: EFTRENONACOG ALFA
     Route: 042
     Dates: start: 202202
  8. ALPROLIX [Suspect]
     Active Substance: EFTRENONACOG ALFA
     Route: 042
     Dates: start: 202202

REACTIONS (7)
  - Haemorrhage [Unknown]
  - Weight increased [Unknown]
  - Haemorrhage [Unknown]
  - Ligament sprain [Unknown]
  - Spontaneous haemorrhage [Recovered/Resolved]
  - Spontaneous haemorrhage [Unknown]
  - Mouth injury [Unknown]

NARRATIVE: CASE EVENT DATE: 20241101
